FAERS Safety Report 9627286 (Version 1)
Quarter: 2013Q4

REPORT INFORMATION
  Report Type: Not Available
  Country: US (occurrence: US)
  Receive Date: 20131016
  Receipt Date: 20131016
  Transmission Date: 20140711
  Serious: Yes (Other)
  Sender: FDA-Public Use
  Company Number: US-LUNDBECK-DKLU1085121

PATIENT
  Sex: Male

DRUGS (9)
  1. SABRIL (TABLET) [Suspect]
     Indication: GRAND MAL CONVULSION
     Route: 048
     Dates: start: 20120113
  2. SABRIL (TABLET) [Suspect]
     Route: 048
  3. SABRIL (TABLET) [Suspect]
     Route: 048
     Dates: start: 20120201
  4. SABRIL (TABLET) [Suspect]
     Route: 048
     Dates: start: 20120201
  5. SABRIL (TABLET) [Suspect]
     Route: 048
  6. SABRIL (TABLET) [Suspect]
     Route: 048
  7. SABRIL (TABLET) [Suspect]
     Route: 048
     Dates: start: 20120220
  8. SABRIL (TABLET) [Suspect]
     Route: 048
     Dates: start: 20120220
  9. SABRIL (TABLET) [Suspect]
     Route: 048
     Dates: start: 20120918

REACTIONS (1)
  - Convulsion [Unknown]
